FAERS Safety Report 4812118-X (Version None)
Quarter: 2005Q4

REPORT INFORMATION
  Report Type: 
  Country: None (occurrence: None)
  Receive Date: 20051028
  Receipt Date: 20040301
  Transmission Date: 20060501
  Serious: No
  Sender: FDA-Public Use
  Company Number: US-GLAXOSMITHKLINE-A0500647A

PATIENT
  Age: 51 Year
  Sex: Female

DRUGS (12)
  1. ADVAIR DISKUS 100/50 [Suspect]
     Indication: ASTHMA
     Dosage: 1PUFF TWICE PER DAY
     Route: 055
     Dates: start: 20040218, end: 20040229
  2. ALBUTEROL [Concomitant]
  3. VALIUM [Concomitant]
  4. HYDROXYZINE [Concomitant]
  5. LEVLEN 28 [Concomitant]
     Route: 065
  6. LEVOTHROID [Concomitant]
  7. LITHIUM [Concomitant]
  8. PREVACID [Concomitant]
  9. TRAZODONE HCL [Concomitant]
  10. TRILEPTAL [Concomitant]
  11. ZOLOFT [Concomitant]
  12. PREDNISONE [Concomitant]

REACTIONS (22)
  - ARTHRALGIA [None]
  - CANDIDIASIS [None]
  - DIZZINESS [None]
  - DRY MOUTH [None]
  - DRY THROAT [None]
  - DYSPHONIA [None]
  - HEADACHE [None]
  - HEART RATE IRREGULAR [None]
  - HYPERAESTHESIA [None]
  - INSOMNIA [None]
  - MUSCLE SPASMS [None]
  - MUSCULOSKELETAL STIFFNESS [None]
  - NASOPHARYNGITIS [None]
  - NERVOUSNESS [None]
  - OCULAR HYPERAEMIA [None]
  - PARAESTHESIA [None]
  - POSTNASAL DRIP [None]
  - PRURITUS [None]
  - PSYCHOMOTOR HYPERACTIVITY [None]
  - SENSITIVITY OF TEETH [None]
  - THROAT IRRITATION [None]
  - URTICARIA [None]
